FAERS Safety Report 6306557-8 (Version None)
Quarter: 2009Q3

REPORT INFORMATION
  Report Type: 
  Country: None (occurrence: None)
  Receive Date: 20090812
  Receipt Date: 20090804
  Transmission Date: 20100115
  Serious: Yes (Hospitalization)
  Sender: FDA-Public Use
  Company Number: A0745310A

PATIENT
  Age: 73 Year
  Sex: Female
  Weight: 90.9 kg

DRUGS (13)
  1. AVANDIA [Suspect]
     Dosage: 4MG TWICE PER DAY
     Route: 048
     Dates: start: 20010611, end: 20070301
  2. AMARYL [Suspect]
     Dosage: 4MG SEE DOSAGE TEXT
     Route: 048
     Dates: start: 20010619
  3. SYNTHROID [Concomitant]
  4. CLONIDINE [Concomitant]
  5. LISINOPRIL [Concomitant]
  6. VIOXX [Concomitant]
  7. HYDROCODONE [Concomitant]
  8. DIAZEPAM [Concomitant]
  9. SYNTHROID [Concomitant]
  10. LEVOTHYROXINE [Concomitant]
  11. BEXTRA [Concomitant]
  12. MOBIC [Concomitant]
  13. VICODIN [Concomitant]

REACTIONS (1)
  - ACUTE MYOCARDIAL INFARCTION [None]
